FAERS Safety Report 9388843 (Version 1)
Quarter: 2013Q3

REPORT INFORMATION
  Report Type: Report from Study
  Country: US (occurrence: US)
  Receive Date: 20130708
  Receipt Date: 20130708
  Transmission Date: 20140515
  Serious: Yes (Other)
  Sender: FDA-Public Use
  Company Number: US-CELGENEUS-163-21880-13064386

PATIENT
  Age: 84 Year
  Sex: Female
  Weight: 114 kg

DRUGS (2)
  1. REVLIMID [Suspect]
     Indication: PLASMA CELL MYELOMA
     Route: 048
  2. REVLIMID [Suspect]
     Dosage: DECREASED DOSAGE
     Route: 048

REACTIONS (1)
  - Adverse reaction [Unknown]
